FAERS Safety Report 18163996 (Version 3)
Quarter: 2021Q4

REPORT INFORMATION
  Report Type: Spontaneous
  Country: US (occurrence: US)
  Receive Date: 20200818
  Receipt Date: 20211224
  Transmission Date: 20220303
  Serious: No
  Sender: FDA-Public Use
  Company Number: US-BIOCODEX2-202000683

PATIENT

DRUGS (3)
  1. DIACOMIT [Suspect]
     Active Substance: STIRIPENTOL
     Indication: Severe myoclonic epilepsy of infancy
     Dosage: 250 MG TWICE DAILY
     Route: 048
     Dates: start: 20200109
  2. DIACOMIT [Suspect]
     Active Substance: STIRIPENTOL
     Dosage: MIX 2 PACKETS OF 250 MG IN 20 ML OF WATER AND DRINK 15 ML, 375 MG BY MOUTH TWICE DAILY
  3. ONFI [Concomitant]
     Active Substance: CLOBAZAM
     Indication: Severe myoclonic epilepsy of infancy
     Dosage: UNK
     Route: 065

REACTIONS (1)
  - Decreased appetite [Unknown]
